FAERS Safety Report 15706870 (Version 1)
Quarter: 2018Q4

REPORT INFORMATION
  Report Type: Spontaneous
  Country: US (occurrence: US)
  Receive Date: 20181210
  Receipt Date: 20181210
  Transmission Date: 20190205
  Serious: Yes (Other)
  Sender: FDA-Public Use
  Company Number: US-BAUSCH-BL-2018-034110

PATIENT
  Sex: Female

DRUGS (1)
  1. UCERIS [Suspect]
     Active Substance: BUDESONIDE
     Indication: COLITIS ULCERATIVE
     Route: 065

REACTIONS (4)
  - Colitis ulcerative [Unknown]
  - Symptom recurrence [Unknown]
  - Insurance issue [Not Recovered/Not Resolved]
  - Therapy cessation [Not Recovered/Not Resolved]
